FAERS Safety Report 17200252 (Version 1)
Quarter: 2019Q4

REPORT INFORMATION
  Report Type: Spontaneous
  Country: IT (occurrence: IT)
  Receive Date: 20191226
  Receipt Date: 20191226
  Transmission Date: 20200122
  Serious: Yes (Other)
  Sender: FDA-Public Use
  Company Number: IT-ALKEM LABORATORIES LIMITED-IT-ALKEM-2019-03098

PATIENT
  Age: 53 Year
  Sex: Male
  Weight: 108 kg

DRUGS (2)
  1. MYCOPHENOLATE MOFETIL. [Suspect]
     Active Substance: MYCOPHENOLATE MOFETIL
     Indication: IGA NEPHROPATHY
     Dosage: 1500 MILLIGRAM, QD
     Route: 065
  2. PREDNISONE. [Suspect]
     Active Substance: PREDNISONE
     Indication: IGA NEPHROPATHY
     Dosage: 5 MILLIGRAM, QD
     Route: 048

REACTIONS (1)
  - Therapy partial responder [Unknown]
